FAERS Safety Report 16007112 (Version 1)
Quarter: 2019Q1

REPORT INFORMATION
  Report Type: Spontaneous
  Country: US (occurrence: US)
  Receive Date: 20190226
  Receipt Date: 20190226
  Transmission Date: 20190418
  Serious: Yes (Hospitalization)
  Sender: FDA-Public Use
  Company Number: US-JNJFOC-20190230508

PATIENT
  Age: 46 Year
  Sex: Female
  Weight: 114.31 kg

DRUGS (1)
  1. INVOKANA [Suspect]
     Active Substance: CANAGLIFLOZIN
     Indication: TYPE 2 DIABETES MELLITUS
     Route: 048
     Dates: start: 20130804

REACTIONS (6)
  - Skin ulcer [Unknown]
  - Haematoma [Unknown]
  - Toe amputation [Unknown]
  - Osteomyelitis [Unknown]
  - Impaired healing [Unknown]
  - Hyperkeratosis [Unknown]

NARRATIVE: CASE EVENT DATE: 20131213
